FAERS Safety Report 8340509-1 (Version None)
Quarter: 2012Q2

REPORT INFORMATION
  Report Type: 
  Country: None (occurrence: None)
  Receive Date: 20120507
  Receipt Date: 20120502
  Transmission Date: 20120825
  Serious: Yes (Other)
  Sender: FDA-Public Use
  Company Number: US-BAYER-2012-043774

PATIENT
  Age: 33 Year
  Sex: Female

DRUGS (5)
  1. PAXIL CR [Concomitant]
     Dosage: 12.5 MG, UNK
  2. ACETAMINOPHEN AND OXYCODONE HCL [Concomitant]
  3. METRONIDAZOLE [Concomitant]
     Dosage: 500 MG, BID
     Route: 048
     Dates: start: 20060717
  4. YAZ [Suspect]
  5. MINOCYCLINE HCL [Concomitant]
     Dosage: 100 MG, UNK

REACTIONS (1)
  - PULMONARY THROMBOSIS [None]
